FAERS Safety Report 21323873 (Version 1)
Quarter: 2022Q3

REPORT INFORMATION
  Report Type: Spontaneous
  Country: US (occurrence: None)
  Receive Date: 20220912
  Receipt Date: 20220912
  Transmission Date: 20221027
  Serious: Yes (Hospitalization)
  Sender: FDA-Public Use
  Company Number: None

PATIENT
  Age: 71 Year
  Sex: Female
  Weight: 82.37 kg

DRUGS (4)
  1. CARBOPLATIN [Suspect]
     Active Substance: CARBOPLATIN
     Dates: end: 20220816
  2. TAXOL [Suspect]
     Active Substance: PACLITAXEL
     Dates: end: 20220816
  3. ACETAMINOPHEN\CODEINE PHOSPHATE [Concomitant]
     Active Substance: ACETAMINOPHEN\CODEINE PHOSPHATE
  4. FENTANYL TRANSDERMAL SYSTEM [Concomitant]
     Active Substance: FENTANYL

REACTIONS (11)
  - Fall [None]
  - Dizziness [None]
  - Loss of consciousness [None]
  - Hyponatraemia [None]
  - Anaemia [None]
  - Asthenia [None]
  - Fatigue [None]
  - Urinary tract infection [None]
  - Inappropriate antidiuretic hormone secretion [None]
  - Hypotension [None]
  - Hyperhidrosis [None]

NARRATIVE: CASE EVENT DATE: 20220828
